FAERS Safety Report 9118404 (Version 1)
Quarter: 2013Q1

REPORT INFORMATION
  Report Type: Spontaneous
  Country: US (occurrence: None)
  Receive Date: 20130221
  Receipt Date: 20130221
  Transmission Date: 20140127
  Serious: Yes (Other)
  Sender: FDA-Public Use
  Company Number: None

PATIENT
  Age: 29 Month
  Sex: Male
  Weight: 13.61 kg

DRUGS (1)
  1. TAMIFLU [Suspect]
     Indication: INFLUENZA B VIRUS TEST POSITIVE
     Dosage: 1 TSP EVERY 12 HOURS PO
     Route: 048
     Dates: start: 20130215, end: 20130216

REACTIONS (5)
  - Belligerence [None]
  - Aggression [None]
  - Mania [None]
  - Sleep disorder [None]
  - Screaming [None]
